FAERS Safety Report 16937196 (Version 1)
Quarter: 2019Q4

REPORT INFORMATION
  Report Type: Spontaneous
  Country: US (occurrence: US)
  Receive Date: 20191018
  Receipt Date: 20191018
  Transmission Date: 20200122
  Serious: Yes (Death, Life-Threatening, Hospitalization, Other)
  Sender: FDA-Public Use
  Company Number: US-GLAXOSMITHKLINE-US2019GSK188239

PATIENT
  Sex: Male
  Weight: 94.5 kg

DRUGS (1)
  1. LAMOTRIGINE. [Suspect]
     Active Substance: LAMOTRIGINE
     Indication: BIPOLAR I DISORDER
     Dosage: UNK
     Route: 065

REACTIONS (7)
  - Dehydration [Unknown]
  - Micturition frequency decreased [Unknown]
  - Fatigue [Unknown]
  - Cognitive disorder [Unknown]
  - Pyrexia [Unknown]
  - Lethargy [Unknown]
  - Haemophagocytic lymphohistiocytosis [Fatal]
